FAERS Safety Report 12608231 (Version 2)
Quarter: 2016Q3

REPORT INFORMATION
  Report Type: Spontaneous
  Country: DE (occurrence: DE)
  Receive Date: 20160729
  Receipt Date: 20160729
  Transmission Date: 20161109
  Serious: Yes (Hospitalization)
  Sender: FDA-Public Use
  Company Number: ALCN2016DE005199

PATIENT
  Age: 62 Year
  Sex: Female

DRUGS (4)
  1. BRINZOLAMIDE [Suspect]
     Active Substance: BRINZOLAMIDE
     Indication: INTRAOCULAR PRESSURE INCREASED
     Dosage: 2 DF, QD
     Route: 047
  2. TIMOLOL. [Suspect]
     Active Substance: TIMOLOL
     Indication: INTRAOCULAR PRESSURE INCREASED
     Dosage: 2 DF, QD
     Route: 047
  3. BRIMONIDINE [Suspect]
     Active Substance: BRIMONIDINE TARTRATE
     Indication: INTRAOCULAR PRESSURE INCREASED
     Dosage: 3 DF, QD
     Route: 047
  4. ACETAZOLAMIDE. [Concomitant]
     Active Substance: ACETAZOLAMIDE
     Indication: INTRAOCULAR PRESSURE INCREASED
     Dosage: 1 DF, QD
     Route: 048

REACTIONS (11)
  - Conjunctival hyperaemia [Recovered/Resolved]
  - Anterior chamber inflammation [Recovered/Resolved]
  - Iris adhesions [Recovered/Resolved]
  - Corneal disorder [Recovered/Resolved]
  - Retinal pigmentation [Recovered/Resolved]
  - Endophthalmitis [Recovered/Resolved]
  - Listeriosis [Recovered/Resolved]
  - Corneal epithelium defect [Recovered/Resolved]
  - Corneal oedema [Recovered/Resolved]
  - Hypopyon [Recovered/Resolved]
  - Cataract [Unknown]
